FAERS Safety Report 25198416 (Version 1)
Quarter: 2025Q2

REPORT INFORMATION
  Report Type: Spontaneous
  Country: GB (occurrence: SE)
  Receive Date: 20250415
  Receipt Date: 20250415
  Transmission Date: 20250717
  Serious: Yes (Other)
  Sender: ALKEM
  Company Number: GB-ALKEM LABORATORIES LIMITED-SE-ALKEM-2025-03803

PATIENT

DRUGS (10)
  1. ISONIAZID [Suspect]
     Active Substance: ISONIAZID
     Indication: Atypical mycobacterial infection
     Route: 042
  2. ISONIAZID [Suspect]
     Active Substance: ISONIAZID
     Indication: Pneumonia
  3. CIPROFLOXACIN [Concomitant]
     Active Substance: CIPROFLOXACIN
     Indication: Atypical mycobacterial infection
     Route: 042
  4. CIPROFLOXACIN [Concomitant]
     Active Substance: CIPROFLOXACIN
     Indication: Pneumonia
  5. ETHAMBUTOL [Concomitant]
     Active Substance: ETHAMBUTOL HYDROCHLORIDE
     Indication: Atypical mycobacterial infection
     Route: 042
  6. ETHAMBUTOL [Concomitant]
     Active Substance: ETHAMBUTOL HYDROCHLORIDE
     Indication: Pneumonia
  7. RIFAMPIN [Concomitant]
     Active Substance: RIFAMPIN
     Indication: Atypical mycobacterial infection
     Route: 042
  8. RIFAMPIN [Concomitant]
     Active Substance: RIFAMPIN
     Indication: Pneumonia
  9. STREPTOMYCIN [Concomitant]
     Active Substance: STREPTOMYCIN SULFATE
     Indication: Atypical mycobacterial infection
     Route: 042
  10. STREPTOMYCIN [Concomitant]
     Active Substance: STREPTOMYCIN SULFATE
     Indication: Pneumonia

REACTIONS (1)
  - Seizure [Unknown]
